FAERS Safety Report 16149218 (Version 2)
Quarter: 2019Q2

REPORT INFORMATION
  Report Type: Spontaneous
  Country: US (occurrence: US)
  Receive Date: 20190402
  Receipt Date: 20190513
  Transmission Date: 20190711
  Serious: No
  Sender: FDA-Public Use
  Company Number: US-NEUROCRINE BIOSCIENCES INC.-2019NBI00781

PATIENT
  Sex: Female

DRUGS (4)
  1. INGREZZA [Suspect]
     Active Substance: VALBENAZINE
     Route: 048
     Dates: start: 201903, end: 2019
  2. INGREZZA [Suspect]
     Active Substance: VALBENAZINE
     Indication: TARDIVE DYSKINESIA
     Dosage: ONCE EVERY OTHER DAY
     Route: 048
     Dates: start: 20190311, end: 201903
  3. FANAPT [Suspect]
     Active Substance: ILOPERIDONE
     Indication: PRODUCT USED FOR UNKNOWN INDICATION
  4. PROPRANOLOL [Concomitant]
     Active Substance: PROPRANOLOL HYDROCHLORIDE
     Indication: TREMOR

REACTIONS (5)
  - Somnolence [Recovered/Resolved]
  - Insomnia [Recovered/Resolved]
  - Off label use [Unknown]
  - Drug ineffective [None]
  - Product dose omission [Unknown]

NARRATIVE: CASE EVENT DATE: 2019
